FAERS Safety Report 9807299 (Version 2)
Quarter: 2014Q1

REPORT INFORMATION
  Report Type: Spontaneous
  Country: US (occurrence: US)
  Receive Date: 20140110
  Receipt Date: 20140128
  Transmission Date: 20141002
  Serious: Yes (Death)
  Sender: FDA-Public Use
  Company Number: US-009507513-1401USA002849

PATIENT
  Age: 38 Year
  Sex: Female
  Weight: 99 kg

DRUGS (9)
  1. SAPHRIS [Suspect]
     Indication: DEPRESSION
     Dosage: 10 MG, BID
     Route: 060
  2. CLONIDINE [Suspect]
  3. DULOXETINE HYDROCHLORIDE [Suspect]
  4. FLUOXETINE [Suspect]
  5. GABAPENTIN [Suspect]
  6. ONDANSETRON [Suspect]
  7. PRAMIPEXOLE [Suspect]
  8. RISPERIDONE [Suspect]
  9. QUETIAPINE FUMARATE [Suspect]

REACTIONS (1)
  - Toxicity to various agents [Fatal]
